FAERS Safety Report 13574401 (Version 1)
Quarter: 2017Q2

REPORT INFORMATION
  Report Type: Spontaneous
  Country: DE (occurrence: DE)
  Receive Date: 20170523
  Receipt Date: 20170523
  Transmission Date: 20170830
  Serious: Yes (Other)
  Sender: FDA-Public Use
  Company Number: DE-MYLANLABS-2017M1030855

PATIENT

DRUGS (5)
  1. PHENOBARBITAL. [Concomitant]
     Active Substance: PHENOBARBITAL
     Indication: CONVULSION NEONATAL
     Dosage: LOADING 20 MG/KG
     Route: 065
  2. MIDAZOLAM [Concomitant]
     Active Substance: MIDAZOLAM HYDROCHLORIDE
     Indication: CONVULSION NEONATAL
     Dosage: MAX DOSE 0.25 MG/KG/H
     Route: 065
  3. LIDOCAINE. [Suspect]
     Active Substance: LIDOCAINE
     Dosage: CONTINUOUS INFUSION 4MG/KG PER HOUR
     Route: 041
  4. TOPIRAMATE. [Concomitant]
     Active Substance: TOPIRAMATE
     Indication: CONVULSION NEONATAL
     Dosage: 2 MG/KG/D
     Route: 065
  5. LIDOCAINE. [Suspect]
     Active Substance: LIDOCAINE
     Indication: CONVULSION NEONATAL
     Dosage: 6MG/KG BOLUS WITHIN 20 MINUTES
     Route: 040

REACTIONS (1)
  - Methaemoglobinaemia [Recovered/Resolved]
